FAERS Safety Report 5950643-9 (Version None)
Quarter: 2008Q4

REPORT INFORMATION
  Report Type: 
  Country: None (occurrence: None)
  Receive Date: 20081112
  Receipt Date: 20081031
  Transmission Date: 20090506
  Serious: Yes (Hospitalization)
  Sender: FDA-Public Use
  Company Number: US-AVENTIS-200712616US

PATIENT
  Sex: Male

DRUGS (8)
  1. KETEK [Suspect]
     Indication: BRONCHITIS
     Dosage: DOSE: 400 (SAMPLES)
     Route: 048
     Dates: start: 20060426, end: 20060401
  2. KETEK [Suspect]
     Dosage: DOSE: 400 (SAMPLES)
     Route: 048
     Dates: start: 20060426, end: 20060401
  3. LOSARTAN POTASSIUM [Concomitant]
     Dates: start: 20070301
  4. GLYBURIDE [Concomitant]
  5. METOPROLOL TARTRATE [Concomitant]
  6. MULTI-VITAMINS [Concomitant]
     Dosage: DOSE: UNK
  7. COSOPT [Concomitant]
     Dosage: DOSE: UNK
  8. FLOMAX [Concomitant]

REACTIONS (30)
  - ABDOMINAL PAIN [None]
  - ABDOMINAL PAIN UPPER [None]
  - ALANINE AMINOTRANSFERASE INCREASED [None]
  - ANTI-HBE ANTIBODY POSITIVE [None]
  - ASPARTATE AMINOTRANSFERASE INCREASED [None]
  - BILIRUBIN CONJUGATED INCREASED [None]
  - BLOOD ALBUMIN DECREASED [None]
  - BLOOD BILIRUBIN INCREASED [None]
  - BLOOD CREATININE INCREASED [None]
  - CARBON DIOXIDE DECREASED [None]
  - CHEST PAIN [None]
  - CHILLS [None]
  - CONFUSIONAL STATE [None]
  - DECREASED APPETITE [None]
  - DEHYDRATION [None]
  - DIARRHOEA [None]
  - DYSPNOEA [None]
  - FATIGUE [None]
  - GALLBLADDER DISORDER [None]
  - HEPATIC FAILURE [None]
  - HEPATITIS [None]
  - HYPONATRAEMIA [None]
  - INTERNATIONAL NORMALISED RATIO DECREASED [None]
  - JAUNDICE [None]
  - LIPASE INCREASED [None]
  - NAUSEA [None]
  - PRURITUS [None]
  - PYREXIA [None]
  - SPLENOMEGALY [None]
  - WEIGHT DECREASED [None]
